FAERS Safety Report 10146359 (Version 1)
Quarter: 2014Q2

REPORT INFORMATION
  Report Type: Spontaneous
  Country: US (occurrence: None)
  Receive Date: 20140430
  Receipt Date: 20140430
  Transmission Date: 20141212
  Serious: Yes (Hospitalization)
  Sender: FDA-Public Use
  Company Number: None

PATIENT
  Age: 54 Year
  Sex: Male

DRUGS (12)
  1. AZITHROMYCIN [Suspect]
     Indication: PNEUMONIA
     Route: 042
     Dates: end: 20140101
  2. HEPARIN [Concomitant]
  3. ACETAMINOPHEN [Concomitant]
  4. ASPIRIN [Concomitant]
  5. ATORVASTATIN [Concomitant]
  6. CLOPIDOGREL [Concomitant]
  7. DOCUSOATE [Concomitant]
  8. FUROSEMIDE [Concomitant]
  9. HALOPERIDOL [Concomitant]
  10. ONDANSETRON [Concomitant]
  11. POTASSIUM [Concomitant]
  12. CHLORIDE [Concomitant]

REACTIONS (7)
  - Agitation [None]
  - Mental status changes [None]
  - Bradycardia [None]
  - Shock [None]
  - Acute respiratory failure [None]
  - Anaphylactic reaction [None]
  - Cardiac arrest [None]
